FAERS Safety Report 10989985 (Version 2)
Quarter: 2015Q2

REPORT INFORMATION
  Report Type: Spontaneous
  Country: US (occurrence: US)
  Receive Date: 20150406
  Receipt Date: 20150413
  Transmission Date: 20150821
  Serious: No
  Sender: FDA-Public Use
  Company Number: US-ELI_LILLY_AND_COMPANY-US201503009350

PATIENT
  Age: 72 Year
  Sex: Male

DRUGS (2)
  1. HUMULIN 70/30 [Suspect]
     Active Substance: INSULIN HUMAN
     Indication: TYPE 2 DIABETES MELLITUS
     Dosage: 42 U, BID
     Route: 065
     Dates: start: 2014
  2. AMARYL [Concomitant]
     Active Substance: GLIMEPIRIDE

REACTIONS (4)
  - Drug ineffective [Recovered/Resolved]
  - Neuropathy peripheral [Unknown]
  - Blood glucose increased [Recovered/Resolved]
  - Sleep disorder [Unknown]

NARRATIVE: CASE EVENT DATE: 20150320
